FAERS Safety Report 16736496 (Version 2)
Quarter: 2019Q4

REPORT INFORMATION
  Report Type: Spontaneous
  Country: US (occurrence: US)
  Receive Date: 20190823
  Receipt Date: 20191118
  Transmission Date: 20200122
  Serious: No
  Sender: FDA-Public Use
  Company Number: US-JNJFOC-20190827853

PATIENT
  Age: 53 Year
  Sex: Female
  Weight: 90.9 kg

DRUGS (2)
  1. STELARA [Suspect]
     Active Substance: USTEKINUMAB
     Indication: CROHN^S DISEASE
     Route: 042
     Dates: start: 20190821
  2. MERCAPTOPURINE. [Concomitant]
     Active Substance: MERCAPTOPURINE

REACTIONS (1)
  - Medication error [Unknown]

NARRATIVE: CASE EVENT DATE: 20190821
